FAERS Safety Report 4941744-2 (Version None)
Quarter: 2006Q1

REPORT INFORMATION
  Report Type: 
  Country: None (occurrence: None)
  Receive Date: 20060308
  Receipt Date: 20060223
  Transmission Date: 20060701
  Serious: Yes (Other)
  Sender: FDA-Public Use
  Company Number: 2006026812

PATIENT
  Age: 51 Year
  Sex: Male
  Weight: 83.9154 kg

DRUGS (3)
  1. NEURONTIN [Suspect]
     Indication: PAIN IN EXTREMITY
     Dosage: 900 MG (300 MG, 3 IN 1 D), ORAL
     Route: 048
     Dates: start: 20040101, end: 20060101
  2. LYRICA [Suspect]
     Indication: PAIN IN EXTREMITY
     Dosage: 75 MG (75 MG, 1 IN 1 D), ORAL
     Route: 048
     Dates: start: 20060201
  3. NORVASC [Concomitant]

REACTIONS (4)
  - DRUG INEFFECTIVE [None]
  - PAIN IN EXTREMITY [None]
  - POST PROCEDURAL COMPLICATION [None]
  - SPINAL OPERATION [None]
